FAERS Safety Report 8532167-8 (Version None)
Quarter: 2012Q3

REPORT INFORMATION
  Report Type: 
  Country: None (occurrence: None)
  Receive Date: 20120723
  Receipt Date: 20120713
  Transmission Date: 20120928
  Serious: Yes (Disabling)
  Sender: FDA-Public Use
  Company Number: JP-GLAXOSMITHKLINE-B0801778A

PATIENT
  Sex: Female
  Weight: 50 kg

DRUGS (1)
  1. HYCAMTIN [Suspect]
     Indication: OVARIAN CANCER
     Dosage: 1MGM2 PER DAY
     Route: 042
     Dates: start: 20120423, end: 20120427

REACTIONS (3)
  - NEUTROPHIL COUNT DECREASED [None]
  - DYSGEUSIA [None]
  - PLATELET COUNT DECREASED [None]
